FAERS Safety Report 18624007 (Version 1)
Quarter: 2020Q4

REPORT INFORMATION
  Report Type: Report from Study
  Country: US (occurrence: US)
  Receive Date: 20201216
  Receipt Date: 20201216
  Transmission Date: 20210114
  Serious: Yes (Other)
  Sender: FDA-Public Use
  Company Number: US-ASTRAZENECA-2020SF66720

PATIENT
  Sex: Female
  Weight: 56.7 kg

DRUGS (1)
  1. CALQUENCE [Suspect]
     Active Substance: ACALABRUTINIB
     Indication: CHRONIC LYMPHOCYTIC LEUKAEMIA
     Route: 048
     Dates: start: 20201102

REACTIONS (3)
  - Ascites [Recovered/Resolved with Sequelae]
  - Asthenia [Unknown]
  - Pleural effusion [Recovered/Resolved with Sequelae]
